FAERS Safety Report 25515409 (Version 1)
Quarter: 2025Q3

REPORT INFORMATION
  Report Type: Spontaneous
  Country: JP (occurrence: JP)
  Receive Date: 20250704
  Receipt Date: 20250704
  Transmission Date: 20251021
  Serious: Yes (Other)
  Sender: UCB
  Company Number: JP-UCBJ-CD202508646UCBPHAPROD

PATIENT
  Age: 6 Decade
  Sex: Female

DRUGS (1)
  1. CIMZIA [Suspect]
     Active Substance: CERTOLIZUMAB PEGOL
     Indication: Psoriatic arthropathy
     Dosage: 400 MILLIGRAM, MONTHLY (QM)
     Route: 058
     Dates: start: 2023, end: 202412

REACTIONS (3)
  - Psoriatic arthropathy [Recovered/Resolved]
  - Injection site pain [Unknown]
  - Therapeutic response decreased [Unknown]
